FAERS Safety Report 5532444-9 (Version None)
Quarter: 2007Q4

REPORT INFORMATION
  Report Type: 
  Country: None (occurrence: None)
  Receive Date: 20071203
  Receipt Date: 20071126
  Transmission Date: 20080405
  Serious: Yes (Hospitalization, Other)
  Sender: FDA-Public Use
  Company Number: JP-PFIZER INC-2007089049

PATIENT
  Sex: Male
  Weight: 76 kg

DRUGS (8)
  1. NORVASC [Suspect]
     Indication: RENOVASCULAR HYPERTENSION
     Route: 048
     Dates: start: 20070201, end: 20070222
  2. NORVASC [Suspect]
     Route: 048
     Dates: start: 20070223, end: 20070823
  3. NORVASC [Suspect]
     Route: 048
  4. DEPAKENE [Suspect]
     Indication: SURGERY
     Route: 048
     Dates: start: 20070827, end: 20071019
  5. LISINOPRIL [Suspect]
     Indication: RENOVASCULAR HYPERTENSION
     Route: 048
     Dates: start: 20070201, end: 20070208
  6. LISINOPRIL [Suspect]
     Route: 048
     Dates: start: 20070209, end: 20070318
  7. LISINOPRIL [Suspect]
     Route: 048
     Dates: start: 20070319, end: 20070517
  8. LISINOPRIL [Suspect]
     Route: 048

REACTIONS (1)
  - APLASIA PURE RED CELL [None]
